FAERS Safety Report 11869370 (Version 1)
Quarter: 2015Q4

REPORT INFORMATION
  Report Type: Spontaneous
  Country: US (occurrence: US)
  Receive Date: 20151227
  Receipt Date: 20151227
  Transmission Date: 20160305
  Serious: No
  Sender: FDA-Public Use
  Company Number: US-ASTRAZENECA-2015SE81083

PATIENT
  Age: 789 Month
  Sex: Male
  Weight: 99.8 kg

DRUGS (1)
  1. BYDUREON [Suspect]
     Active Substance: EXENATIDE
     Indication: TYPE 2 DIABETES MELLITUS
     Dosage: 2 MG, ONCE A WEEK, 4 COUNT
     Route: 058
     Dates: start: 20150624

REACTIONS (5)
  - Circumstance or information capable of leading to medication error [Unknown]
  - Product quality issue [Unknown]
  - Underdose [Unknown]
  - Device use error [Unknown]
  - Injection site pain [Unknown]

NARRATIVE: CASE EVENT DATE: 201508
